FAERS Safety Report 4801051-5 (Version None)
Quarter: 2005Q4

REPORT INFORMATION
  Report Type: 
  Country: None (occurrence: None)
  Receive Date: 20051012
  Receipt Date: 20050929
  Transmission Date: 20060501
  Serious: Yes (Disabling, Other)
  Sender: FDA-Public Use
  Company Number: 2005137019

PATIENT
  Age: 65 Year
  Sex: Female

DRUGS (6)
  1. XALATAN [Suspect]
     Indication: GLAUCOMA
     Dosage: (QD), OPHTHALMIC
     Route: 047
     Dates: start: 20000704
  2. PURAN T4 (LEVOTHYROXINE SODIUM) [Concomitant]
  3. DIOVAN ^CIBA-GEIGY^ (VALSARTAN) [Concomitant]
  4. ATENOLOL [Concomitant]
  5. ASPIRIN [Concomitant]
  6. COSOPT [Concomitant]

REACTIONS (2)
  - EYE ALLERGY [None]
  - VISUAL FIELD DEFECT [None]
